FAERS Safety Report 11504579 (Version 1)
Quarter: 2015Q3

REPORT INFORMATION
  Report Type: Spontaneous
  Country: US (occurrence: US)
  Receive Date: 20150915
  Receipt Date: 20150915
  Transmission Date: 20151125
  Serious: No
  Sender: FDA-Public Use
  Company Number: US-ROCHE-773271

PATIENT
  Age: 21 Year
  Sex: Male

DRUGS (2)
  1. PEGASYS [Suspect]
     Active Substance: PEGINTERFERON ALFA-2A
     Indication: HEPATITIS C
     Route: 058
  2. RIBAVIRIN. [Suspect]
     Active Substance: RIBAVIRIN
     Indication: HEPATITIS C
     Dosage: DIVIDED DOSES
     Route: 048

REACTIONS (11)
  - Pyrexia [Unknown]
  - Haemorrhage [Unknown]
  - Headache [Unknown]
  - Sinus disorder [Not Recovered/Not Resolved]
  - Low density lipoprotein decreased [Unknown]
  - Mucosal dryness [Unknown]
  - Chills [Unknown]
  - Epistaxis [Recovered/Resolved]
  - Hallucination, auditory [Unknown]
  - Eye pain [Unknown]
  - Back pain [Unknown]

NARRATIVE: CASE EVENT DATE: 20110415
